FAERS Safety Report 17109573 (Version 1)
Quarter: 2019Q4

REPORT INFORMATION
  Report Type: Report from Study
  Country: MX (occurrence: MX)
  Receive Date: 20191204
  Receipt Date: 20191204
  Transmission Date: 20200122
  Serious: Yes (Hospitalization, Other)
  Sender: FDA-Public Use
  Company Number: MX-GILEAD-2019-0440800

PATIENT
  Sex: Female

DRUGS (1)
  1. LEDIPASVIR/SOFOSBUVIR [Suspect]
     Active Substance: LEDIPASVIR\SOFOSBUVIR
     Indication: CHRONIC HEPATITIS C
     Dosage: UNK
     Route: 065

REACTIONS (10)
  - Asthenia [Unknown]
  - Weight decreased [Unknown]
  - Dizziness postural [Unknown]
  - Chondropathy [Unknown]
  - Gait inability [Unknown]
  - Feeling abnormal [Unknown]
  - Nausea [Unknown]
  - Loss of consciousness [Unknown]
  - Blood uric acid abnormal [Unknown]
  - Hypertension [Unknown]
